FAERS Safety Report 9553184 (Version 1)
Quarter: 2013Q3

REPORT INFORMATION
  Report Type: Spontaneous
  Country: US (occurrence: None)
  Receive Date: 20130916
  Receipt Date: 20130916
  Transmission Date: 20140515
  Serious: Yes (Other)
  Sender: FDA-Public Use
  Company Number: 2013037967

PATIENT
  Age: 12 Year
  Sex: Female

DRUGS (1)
  1. HIZENTRA [Suspect]
     Dosage: 1X/WEEK, ??-OCT-2012

REACTIONS (2)
  - Convulsion [None]
  - Condition aggravated [None]
